FAERS Safety Report 6726428-2 (Version None)
Quarter: 2010Q2

REPORT INFORMATION
  Report Type: 
  Country: None (occurrence: None)
  Receive Date: 20100514
  Receipt Date: 20100504
  Transmission Date: 20101027
  Serious: Yes (Hospitalization)
  Sender: FDA-Public Use
  Company Number: SE-JNJFOC-20100505102

PATIENT
  Age: 66 Year
  Sex: Female

DRUGS (6)
  1. INFLIXIMAB, RECOMBINANT [Suspect]
     Indication: RHEUMATOID ARTHRITIS
     Route: 042
  2. ENBREL [Suspect]
     Indication: RHEUMATOID ARTHRITIS
     Route: 058
  3. IMUREL [Suspect]
     Indication: RHEUMATOID ARTHRITIS
     Route: 048
  4. FELODIPINE [Concomitant]
  5. LASIX [Concomitant]
  6. KETOPROFEN [Concomitant]

REACTIONS (1)
  - UTERINE CANCER [None]
